FAERS Safety Report 8962879 (Version 2)
Quarter: 2013Q1

REPORT INFORMATION
  Report Type: Report from Study
  Country: FR (occurrence: FR)
  Receive Date: 20121213
  Receipt Date: 20130207
  Transmission Date: 20140127
  Serious: Yes (Hospitalization)
  Sender: FDA-Public Use
  Company Number: FR-ROCHE-1167584

PATIENT
  Age: 70 Year
  Sex: Male

DRUGS (12)
  1. RITUXIMAB [Suspect]
     Indication: CHRONIC LYMPHOCYTIC LEUKAEMIA
     Route: 042
     Dates: start: 20111212
  2. RITUXIMAB [Suspect]
     Route: 042
     Dates: start: 20120109
  3. ENDOXAN [Suspect]
     Indication: CHRONIC LYMPHOCYTIC LEUKAEMIA
     Route: 065
     Dates: start: 20120109, end: 20120111
  4. FLUDARA [Suspect]
     Indication: CHRONIC LYMPHOCYTIC LEUKAEMIA
     Route: 065
     Dates: start: 20120109, end: 20120111
  5. METFORMIN [Concomitant]
  6. SOTALOL [Concomitant]
  7. SITAGLIPTIN [Concomitant]
  8. FLUINDIONE [Concomitant]
  9. ROSUVASTATIN [Concomitant]
  10. ALLOPURINOL [Concomitant]
  11. FOLIC ACID [Concomitant]
  12. VORICONAZOLE [Concomitant]

REACTIONS (7)
  - Pancytopenia [Not Recovered/Not Resolved]
  - Pyrexia [Not Recovered/Not Resolved]
  - Fungal skin infection [Not Recovered/Not Resolved]
  - Cytomegalovirus infection [Not Recovered/Not Resolved]
  - Pyelonephritis [Not Recovered/Not Resolved]
  - Bronchopulmonary aspergillosis [Not Recovered/Not Resolved]
  - General physical health deterioration [Unknown]
